FAERS Safety Report 4321134-6 (Version None)
Quarter: 2004Q1

REPORT INFORMATION
  Report Type: 
  Country: None (occurrence: None)
  Receive Date: 20040315
  Receipt Date: 20031219
  Transmission Date: 20041129
  Serious: Yes (Other)
  Sender: FDA-Public Use
  Company Number: PHEH2003US10733

PATIENT
  Age: 43 Year
  Sex: Male

DRUGS (5)
  1. TRILEPTAL [Suspect]
     Indication: EPILEPSY
     Dosage: 600 MG, BID, ORAL
     Route: 048
     Dates: start: 20031002, end: 20031030
  2. EFFEXOR [Concomitant]
  3. POTASSIUM (POTASSIUM) [Concomitant]
  4. ZYPREXA [Concomitant]
  5. TRAZODONE HCL [Concomitant]

REACTIONS (4)
  - BLOOD CHLORIDE DECREASED [None]
  - BLOOD POTASSIUM DECREASED [None]
  - CONVULSION [None]
  - HYPONATRAEMIA [None]
